FAERS Safety Report 20561197 (Version 1)
Quarter: 2022Q1

REPORT INFORMATION
  Report Type: Spontaneous
  Country: US (occurrence: US)
  Receive Date: 20220307
  Receipt Date: 20220307
  Transmission Date: 20220423
  Serious: No
  Sender: FDA-Public Use
  Company Number: US-GW PHARMA-202202USGW00990

PATIENT
  Age: 5 Year
  Sex: Female
  Weight: 17.234 kg

DRUGS (4)
  1. EPIDIOLEX [Suspect]
     Active Substance: CANNABIDIOL
     Indication: Atonic seizures
     Dosage: 4.64 MG/KG/DAY, 40 MILLIGRAM, BID
     Route: 048
     Dates: start: 202202, end: 20220222
  2. EPIDIOLEX [Suspect]
     Active Substance: CANNABIDIOL
     Indication: Clonic convulsion
     Dosage: 10.44 MG/KG/DAY, 90 MILLIGRAM, BID
     Route: 048
     Dates: start: 20220223
  3. CLOBAZAM [Concomitant]
     Active Substance: CLOBAZAM
     Indication: Product used for unknown indication
     Dosage: UNK
     Route: 065
  4. OXCARBAZEPINE [Concomitant]
     Active Substance: OXCARBAZEPINE
     Indication: Product used for unknown indication
     Dosage: UNK
     Route: 065

REACTIONS (2)
  - Somnolence [Unknown]
  - Pyrexia [Unknown]

NARRATIVE: CASE EVENT DATE: 20220201
